FAERS Safety Report 9731380 (Version 1)
Quarter: 2013Q4

REPORT INFORMATION
  Report Type: Spontaneous
  Country: US (occurrence: US)
  Receive Date: 20131203
  Receipt Date: 20131203
  Transmission Date: 20140711
  Serious: No
  Sender: FDA-Public Use
  Company Number: US-NOVEN-13US007937

PATIENT
  Age: 49 Year
  Sex: Female

DRUGS (5)
  1. FENTANYL [Suspect]
     Indication: PAIN
     Dosage: 100 UG/HR Q 48 HRS
     Route: 062
     Dates: start: 20131007
  2. EFFEXOR [Concomitant]
     Dosage: UNK
  3. NEURONTIN [Concomitant]
     Dosage: UNK
  4. ESTRACE [Concomitant]
  5. PERCOCET                           /00446701/ [Concomitant]
     Dosage: UNK

REACTIONS (6)
  - Blood pressure increased [Recovered/Resolved]
  - Drug withdrawal syndrome [Recovered/Resolved]
  - Asthenia [Recovered/Resolved]
  - Inadequate analgesia [Recovered/Resolved]
  - Application site erythema [Not Recovered/Not Resolved]
  - Product quality issue [Recovered/Resolved]
